FAERS Safety Report 6883592-2 (Version None)
Quarter: 2010Q3

REPORT INFORMATION
  Report Type: 
  Country: None (occurrence: None)
  Receive Date: 20100727
  Receipt Date: 20100712
  Transmission Date: 20110219
  Serious: Yes (Life-Threatening, Hospitalization, Other)
  Sender: FDA-Public Use
  Company Number: AMAG201000259

PATIENT
  Age: 81 Year
  Sex: Male
  Weight: 90.7 kg

DRUGS (3)
  1. FERAHEME [Suspect]
     Indication: IRON DEFICIENCY ANAEMIA
     Dosage: 510 MG,SINGLE OVER 20 SECONDS, INTRAVENOUS
     Route: 042
     Dates: start: 20100607, end: 20100607
  2. FERAHEME [Suspect]
     Indication: RENAL FAILURE CHRONIC
     Dosage: 510 MG,SINGLE OVER 20 SECONDS, INTRAVENOUS
     Route: 042
     Dates: start: 20100607, end: 20100607
  3. PROCRIT [Concomitant]

REACTIONS (20)
  - ACUTE RESPIRATORY FAILURE [None]
  - ANAPHYLACTIC REACTION [None]
  - APNOEA [None]
  - BACTERIAL TEST POSITIVE [None]
  - BLOOD GLUCOSE INCREASED [None]
  - CARDIAC FAILURE CONGESTIVE [None]
  - CARDIO-RESPIRATORY ARREST [None]
  - ENCEPHALOPATHY [None]
  - EXTRAVASATION [None]
  - FIBRIN D DIMER INCREASED [None]
  - HAEMATOCRIT DECREASED [None]
  - HAEMOGLOBIN DECREASED [None]
  - HYPONATRAEMIA [None]
  - LOSS OF CONSCIOUSNESS [None]
  - LUNG DISORDER [None]
  - NODAL RHYTHM [None]
  - PULSE ABSENT [None]
  - RED CELL DISTRIBUTION WIDTH INCREASED [None]
  - RENAL FAILURE ACUTE [None]
  - RENAL INJURY [None]
